FAERS Safety Report 12289016 (Version 3)
Quarter: 2017Q2

REPORT INFORMATION
  Report Type: Report from Study
  Country: DE (occurrence: DE)
  Receive Date: 20160421
  Receipt Date: 20170519
  Transmission Date: 20170830
  Serious: Yes (Death, Hospitalization)
  Sender: FDA-Public Use
  Company Number: DE-ROCHE-1728126

PATIENT
  Age: 72 Year
  Sex: Female
  Weight: 67 kg

DRUGS (21)
  1. 5-FLUOROURACIL [Concomitant]
     Active Substance: FLUOROURACIL
     Route: 042
     Dates: start: 20150518, end: 20151118
  2. FOLINIC ACID [Concomitant]
     Active Substance: LEUCOVORIN
     Indication: COLORECTAL CANCER
     Route: 042
     Dates: start: 20150323, end: 20150324
  3. OXALIPLATIN. [Concomitant]
     Active Substance: OXALIPLATIN
     Indication: COLORECTAL CANCER
     Route: 042
     Dates: start: 20150323, end: 20150323
  4. OXALIPLATIN. [Concomitant]
     Active Substance: OXALIPLATIN
     Dosage: 10/AUG/2015, 02/SEP/2015, 21/SEP/2015, 05/OCT/2015
     Route: 042
     Dates: start: 20150728, end: 20151019
  5. 5-FLUOROURACIL [Concomitant]
     Active Substance: FLUOROURACIL
     Route: 040
     Dates: start: 20150408, end: 20150505
  6. 5-FLUOROURACIL [Concomitant]
     Active Substance: FLUOROURACIL
     Route: 042
     Dates: start: 20150408, end: 20150506
  7. BEROTEC [Concomitant]
     Active Substance: FENOTEROL HYDROBROMIDE
     Indication: LUNG DISORDER
     Dosage: AS NEEDED
     Route: 065
  8. VALSARTAN. [Concomitant]
     Active Substance: VALSARTAN
     Indication: HYPERTENSION
     Route: 048
     Dates: start: 20120101
  9. BEVACIZUMAB [Suspect]
     Active Substance: BEVACIZUMAB
     Indication: COLORECTAL CANCER
     Route: 042
     Dates: start: 20150407, end: 20150407
  10. 5-FLUOROURACIL [Concomitant]
     Active Substance: FLUOROURACIL
     Route: 040
     Dates: start: 20151202, end: 20160308
  11. 5-FLUOROURACIL [Concomitant]
     Active Substance: FLUOROURACIL
     Route: 042
     Dates: start: 20151202, end: 20160309
  12. OXALIPLATIN. [Concomitant]
     Active Substance: OXALIPLATIN
     Dosage: 20/APR/2015.
     Route: 042
     Dates: start: 20150408, end: 20150504
  13. OXALIPLATIN. [Concomitant]
     Active Substance: OXALIPLATIN
     Dosage: 01/JUN/2015, 15/JUN/2015, 30/JUN/2015, 13/JUL/2015.
     Route: 042
     Dates: start: 20150518, end: 20150713
  14. FOLINIC ACID [Concomitant]
     Active Substance: LEUCOVORIN
     Dosage: NEXT DOSES: 20/APR/2015, 04/MAY/2015
     Route: 042
     Dates: start: 20150408, end: 20150409
  15. 5-FLUOROURACIL [Concomitant]
     Active Substance: FLUOROURACIL
     Route: 040
     Dates: start: 20150518, end: 20151116
  16. 5-FLUOROURACIL [Concomitant]
     Active Substance: FLUOROURACIL
     Route: 042
     Dates: start: 20150323, end: 20150325
  17. FORMOTEROL [Concomitant]
     Active Substance: FORMOTEROL
     Indication: LUNG DISORDER
     Dosage: AS NEEDED
     Route: 065
  18. 5-FLUOROURACIL [Concomitant]
     Active Substance: FLUOROURACIL
     Indication: COLORECTAL CANCER
     Route: 040
     Dates: start: 20150323, end: 20150324
  19. FOLINIC ACID [Concomitant]
     Active Substance: LEUCOVORIN
     Dosage: 01/JUN/2015, 15/JUN/2015, 30/JUN/2015, 13/JUL/2015, 28/JUL/2015, 10/AUG/2015, 02/SEP/2015, 21/SEP/20
     Route: 042
     Dates: start: 20150518, end: 20151117
  20. BEVACIZUMAB [Suspect]
     Active Substance: BEVACIZUMAB
     Route: 042
     Dates: start: 20160307, end: 20160307
  21. FOLINIC ACID [Concomitant]
     Active Substance: LEUCOVORIN
     Dosage: 14/DEC/2015, 04/JAN/2016, 18/JAN/2016, 08/FEB/2016, 22/FEB/2016, 07/MAR/2016
     Route: 042
     Dates: start: 20151202, end: 20160308

REACTIONS (2)
  - Tumour perforation [Fatal]
  - Inflammation [Not Recovered/Not Resolved]

NARRATIVE: CASE EVENT DATE: 20160315
